FAERS Safety Report 9564594 (Version 1)
Quarter: 2013Q3

REPORT INFORMATION
  Report Type: Spontaneous
  Country: US (occurrence: US)
  Receive Date: 20130930
  Receipt Date: 20130930
  Transmission Date: 20140515
  Serious: No
  Sender: FDA-Public Use
  Company Number: US-PFIZER INC-2013276514

PATIENT
  Age: 59 Year
  Sex: Male

DRUGS (1)
  1. INLYTA [Suspect]
     Indication: RENAL NEOPLASM
     Dosage: 5 MG, UNK
     Dates: start: 20130501

REACTIONS (2)
  - Disease progression [Unknown]
  - Renal neoplasm [Unknown]
